FAERS Safety Report 18883808 (Version 1)
Quarter: 2021Q1

REPORT INFORMATION
  Report Type: Spontaneous
  Country: DE (occurrence: DE)
  Receive Date: 20210212
  Receipt Date: 20210212
  Transmission Date: 20210420
  Serious: Yes (Other)
  Sender: FDA-Public Use
  Company Number: DE-SCIEGEN-2021SCILIT00092

PATIENT
  Age: 14 Week
  Sex: Male

DRUGS (1)
  1. METFORMIN [Suspect]
     Active Substance: METFORMIN HYDROCHLORIDE
     Indication: DONOHUE SYNDROME
     Route: 065

REACTIONS (5)
  - Skin haemorrhage [Recovered/Resolved]
  - Drug ineffective for unapproved indication [Unknown]
  - Haematuria [Unknown]
  - Hepatic failure [Unknown]
  - Haematochezia [Unknown]
